FAERS Safety Report 8011695-8 (Version None)
Quarter: 2011Q4

REPORT INFORMATION
  Report Type: 
  Country: None (occurrence: None)
  Receive Date: 20111228
  Receipt Date: 20111221
  Transmission Date: 20120403
  Serious: Yes (Other)
  Sender: FDA-Public Use
  Company Number: US-BAYER-2011-122769

PATIENT
  Sex: Female

DRUGS (4)
  1. ASPIRIN [Suspect]
     Indication: PAIN
     Dosage: UNK
     Dates: start: 20110101
  2. LIPITOR [Suspect]
  3. MOTRIN [Suspect]
     Indication: PAIN
  4. IBUPROFEN [Suspect]
     Indication: PAIN

REACTIONS (3)
  - SKIN DISORDER [None]
  - PAIN [None]
  - IRRITABILITY [None]
